FAERS Safety Report 12306903 (Version 2)
Quarter: 2018Q4

REPORT INFORMATION
  Report Type: Spontaneous
  Country: FR (occurrence: FR)
  Receive Date: 20160426
  Receipt Date: 20181009
  Transmission Date: 20190204
  Serious: Yes (Death, Hospitalization)
  Sender: FDA-Public Use
  Company Number: FR-ROCHE-1746235

PATIENT
  Age: 47 Year
  Sex: Female
  Weight: 67 kg

DRUGS (5)
  1. DEPAKINE [Concomitant]
     Active Substance: VALPROATE SODIUM
  2. COTELLIC [Suspect]
     Active Substance: COBIMETINIB
     Indication: METASTATIC MALIGNANT MELANOMA
     Route: 048
     Dates: start: 20151012, end: 20160318
  3. CORTANCYL [Concomitant]
     Active Substance: PREDNISONE
     Route: 048
  4. ZELBORAF [Concomitant]
     Active Substance: VEMURAFENIB
     Indication: METASTATIC MALIGNANT MELANOMA
     Route: 048
     Dates: start: 20151012
  5. DIFFU K [Concomitant]
     Active Substance: POTASSIUM CHLORIDE

REACTIONS (5)
  - Stress cardiomyopathy [Recovered/Resolved]
  - Vomiting [Recovered/Resolved]
  - Troponin increased [Recovered/Resolved]
  - Chest discomfort [Recovered/Resolved]
  - Ejection fraction decreased [Recovered/Resolved]

NARRATIVE: CASE EVENT DATE: 20160314
